FAERS Safety Report 21278617 (Version 2)
Quarter: 2022Q3

REPORT INFORMATION
  Report Type: Spontaneous
  Country: US (occurrence: US)
  Receive Date: 20220901
  Receipt Date: 20220922
  Transmission Date: 20221027
  Serious: Yes (Other)
  Sender: FDA-Public Use
  Company Number: US-BRISTOL-MYERS SQUIBB COMPANY-2022-098277

PATIENT
  Age: 79 Year
  Sex: Male
  Weight: 79.3 kg

DRUGS (1)
  1. REVLIMID [Suspect]
     Active Substance: LENALIDOMIDE
     Indication: Plasma cell myeloma
     Dosage: 14 DAYS ON 1 WEEK OFF / 2 WEEKS ON AND 1 WEEK OFF
     Route: 048

REACTIONS (8)
  - Peripheral swelling [Unknown]
  - Neuropathy peripheral [Unknown]
  - Abdominal distension [Unknown]
  - Anxiety [Not Recovered/Not Resolved]
  - Tachycardia [Not Recovered/Not Resolved]
  - Irritability [Not Recovered/Not Resolved]
  - Energy increased [Not Recovered/Not Resolved]
  - Off label use [Unknown]
